FAERS Safety Report 16794211 (Version 1)
Quarter: 2019Q3

REPORT INFORMATION
  Report Type: Spontaneous
  Country: CH (occurrence: CH)
  Receive Date: 20190911
  Receipt Date: 20190911
  Transmission Date: 20191005
  Serious: Yes (Other)
  Sender: FDA-Public Use
  Company Number: CH-MYLANLABS-2019M1082783

PATIENT
  Age: 57 Year
  Sex: Female

DRUGS (3)
  1. SPIRICORT [Suspect]
     Active Substance: PREDNISOLONE
     Indication: PRODUCT USED FOR UNKNOWN INDICATION
     Dosage: 1.25 MILLIGRAM, QD
  2. KLACID [Suspect]
     Active Substance: CLARITHROMYCIN
     Indication: PHARYNGOTONSILLITIS
     Dosage: 250 MILLIGRAM, BID
  3. SPIRICORT [Suspect]
     Active Substance: PREDNISOLONE
     Dosage: 75 MILLIGRAM, QD

REACTIONS (2)
  - Dysuria [Recovered/Resolved]
  - Urinary tract infection enterococcal [Recovered/Resolved]
